FAERS Safety Report 5155393-7 (Version None)
Quarter: 2006Q4

REPORT INFORMATION
  Report Type: 
  Country: None (occurrence: None)
  Receive Date: 20061121
  Receipt Date: 20060315
  Transmission Date: 20070319
  Serious: Yes (Death, Life-Threatening)
  Sender: FDA-Public Use
  Company Number: US-SANOFI-SYNTHELABO-A03200601471

PATIENT
  Sex: Male

DRUGS (2)
  1. PLAVIX [Suspect]
     Indication: VASCULAR CALCIFICATION
     Dosage: UNK
     Route: 048
  2. NEXIUM [Concomitant]
     Dosage: UNK
     Route: 048

REACTIONS (4)
  - DEATH [None]
  - FOREIGN BODY ASPIRATION [None]
  - GASTRIC CANCER [None]
  - NEOPLASM MALIGNANT [None]
